FAERS Safety Report 4321846-4 (Version None)
Quarter: 2004Q1

REPORT INFORMATION
  Report Type: 
  Country: None (occurrence: None)
  Receive Date: 20040318
  Receipt Date: 20040306
  Transmission Date: 20041129
  Serious: Yes (Death, Hospitalization)
  Sender: FDA-Public Use
  Company Number: FLUV00303002651

PATIENT
  Age: 58 Year
  Sex: Female

DRUGS (14)
  1. FLUVOXAMINE MALEATE [Suspect]
     Indication: DEPRESSION
     Dosage: 150 MG DAILY PO
     Route: 048
     Dates: start: 20020912, end: 20030101
  2. AMOXAPINE [Suspect]
     Indication: DEPRESSION
     Dosage: 200 MG DAILY PO,, 150 MG DAILY PO
     Route: 048
     Dates: start: 20020912, end: 20030727
  3. AMOXAPINE [Suspect]
     Indication: DEPRESSION
     Dosage: 200 MG DAILY PO,, 150 MG DAILY PO
     Route: 048
     Dates: start: 20030728, end: 20030813
  4. ANAFRANIL [Suspect]
     Indication: DEPRESSION
     Dosage: DAILY IM, 150 MG DAILY PO, 200 MG DAILY PO, 150 MG DAILY PO
     Route: 048
     Dates: start: 20030101, end: 20030101
  5. ANAFRANIL [Suspect]
     Indication: DEPRESSION
     Dosage: DAILY IM, 150 MG DAILY PO, 200 MG DAILY PO, 150 MG DAILY PO
     Route: 048
     Dates: start: 20030728, end: 20030101
  6. ANAFRANIL [Suspect]
     Indication: DEPRESSION
     Dosage: DAILY IM, 150 MG DAILY PO, 200 MG DAILY PO, 150 MG DAILY PO
     Route: 048
     Dates: start: 20020912, end: 20030625
  7. ANAFRANIL [Suspect]
     Indication: DEPRESSION
     Dosage: DAILY IM, 150 MG DAILY PO, 200 MG DAILY PO, 150 MG DAILY PO
     Route: 048
     Dates: start: 20030626, end: 20030713
  8. SYLAZEPAM (ETIZOLAM) [Concomitant]
  9. TASMOLIN (BIPERIDEN) [Concomitant]
  10. ROHYPNOL (FLUNITRAZEPAM) [Concomitant]
  11. VITAMIN A [Concomitant]
  12. NITRAZEPAM [Concomitant]
  13. POLLAKISU (OXYBUTYNIN HYDROCHLORIDE) [Concomitant]
  14. AMAZOLON (AMANTADINE HYDROCHLORIDE) [Concomitant]

REACTIONS (19)
  - ABULIA [None]
  - ANOREXIA [None]
  - ARRHYTHMIA [None]
  - ASTHENIA [None]
  - BLOOD PRESSURE DECREASED [None]
  - CARDIAC ARREST [None]
  - CONDITION AGGRAVATED [None]
  - DEHYDRATION [None]
  - DIFFICULTY IN WALKING [None]
  - DIZZINESS [None]
  - DRUG LEVEL INCREASED [None]
  - GAMMA-GLUTAMYLTRANSFERASE INCREASED [None]
  - INSOMNIA [None]
  - PARKINSONISM [None]
  - RENAL FAILURE [None]
  - RESPIRATORY FAILURE [None]
  - SEROTONIN SYNDROME [None]
  - SPEECH DISORDER [None]
  - SUICIDAL IDEATION [None]
